FAERS Safety Report 4830677-8 (Version None)
Quarter: 2005Q4

REPORT INFORMATION
  Report Type: 
  Country: None (occurrence: None)
  Receive Date: 20051117
  Receipt Date: 20051025
  Transmission Date: 20060501
  Serious: Yes (Other)
  Sender: FDA-Public Use
  Company Number: PHBS2005JP15772

PATIENT
  Age: 30 Year
  Sex: Male
  Weight: 68 kg

DRUGS (3)
  1. DIOVAN [Suspect]
     Indication: HYPERTENSION
     Dosage: 40 MG, QD
     Route: 048
     Dates: start: 20040801, end: 20050902
  2. THEOLONG [Concomitant]
     Indication: ASTHMA
     Dosage: 400 MG, UNK
     Route: 048
     Dates: start: 20050501
  3. FLUTIDE [Concomitant]
     Indication: ASTHMA
     Dosage: 400 UG, UNK
     Dates: start: 20050501

REACTIONS (5)
  - DERMATITIS ATOPIC [None]
  - ERYTHEMA MULTIFORME [None]
  - PIGMENTATION DISORDER [None]
  - PRURITUS [None]
  - RASH [None]
